FAERS Safety Report 18624798 (Version 1)
Quarter: 2020Q4

REPORT INFORMATION
  Report Type: Spontaneous
  Country: US (occurrence: TR)
  Receive Date: 20201216
  Receipt Date: 20201216
  Transmission Date: 20210114
  Serious: Yes (Other)
  Sender: FDA-Public Use
  Company Number: TR-BIOMARINAP-TR-2020-133878

PATIENT
  Age: 6 Year
  Sex: Male

DRUGS (2)
  1. ALDURAZYME [Suspect]
     Active Substance: LARONIDASE
     Indication: MUCOPOLYSACCHARIDOSIS I
     Dosage: UNK, QW
     Route: 065
     Dates: start: 2015, end: 202004
  2. ALDURAZYME [Suspect]
     Active Substance: LARONIDASE
     Dosage: UNK, QOW
     Route: 065
     Dates: start: 2020

REACTIONS (13)
  - Adenoiditis [Unknown]
  - Joint noise [Unknown]
  - Vision blurred [Unknown]
  - Pyrexia [Unknown]
  - Hypoacusis [Unknown]
  - Influenza [Unknown]
  - Finger deformity [Unknown]
  - Product use issue [Unknown]
  - Tooth loss [Unknown]
  - Sleep apnoea syndrome [Unknown]
  - Gait disturbance [Unknown]
  - Speech disorder [Unknown]
  - Gingival swelling [Unknown]

NARRATIVE: CASE EVENT DATE: 2015
